FAERS Safety Report 6882575-6 (Version None)
Quarter: 2010Q3

REPORT INFORMATION
  Report Type: 
  Country: None (occurrence: None)
  Receive Date: 20100729
  Receipt Date: 20100720
  Transmission Date: 20110219
  Serious: Yes (Other)
  Sender: FDA-Public Use
  Company Number: CL-ROCHE-687513

PATIENT
  Sex: Female
  Weight: 63.5 kg

DRUGS (9)
  1. TOCILIZUMAB [Suspect]
     Indication: RHEUMATOID ARTHRITIS
     Dosage: DOSE: 8 MG/KG
     Route: 042
     Dates: start: 20091119
  2. TOCILIZUMAB [Suspect]
     Route: 042
     Dates: start: 20091215
  3. TOCILIZUMAB [Suspect]
     Dosage: THERAPY TEMPORARILY INTERRUPTED AND THEN DISCONTINUED IN MARCH
     Route: 042
     Dates: start: 20100112, end: 20100211
  4. METHOTREXATE [Suspect]
     Indication: RHEUMATOID ARTHRITIS
     Route: 048
  5. METHOTREXATE [Suspect]
     Dosage: THERAPY STOPPED AND THEN PATIENT EXCLUDED FROM THE STUDY
     Route: 048
  6. METOPROLOL TARTRATE [Concomitant]
  7. GLUCOPHAGE [Concomitant]
  8. ALBUTEROL [Concomitant]
     Dosage: DRUG NAME: SALBUTAMOL INH.
  9. METHOTREXATE [Concomitant]
     Route: 048

REACTIONS (2)
  - BRONCHITIS [None]
  - LEUKOPENIA [None]
